FAERS Safety Report 23321486 (Version 1)
Quarter: 2023Q4

REPORT INFORMATION
  Report Type: Spontaneous
  Country: ES (occurrence: ES)
  Receive Date: 20231220
  Receipt Date: 20231220
  Transmission Date: 20240110
  Serious: Yes (Hospitalization, Other)
  Sender: FDA-Public Use
  Company Number: ES-Accord-394325

PATIENT
  Age: 74 Year
  Sex: Female
  Weight: 51.9 kg

DRUGS (27)
  1. GEMCITABINE HYDROCHLORIDE [Suspect]
     Active Substance: GEMCITABINE HYDROCHLORIDE
     Indication: Ductal adenocarcinoma of pancreas
     Dosage: 1500 MG, 1X/DAY (ON DAY 1, 8 AND 15)
     Dates: start: 20230925, end: 20230925
  2. GEMCITABINE HYDROCHLORIDE [Suspect]
     Active Substance: GEMCITABINE HYDROCHLORIDE
     Dosage: 1208 MG, 1X/DAY (ON DAY 1, 8 AND 15)
     Dates: start: 20231009, end: 20231009
  3. GEMCITABINE HYDROCHLORIDE [Suspect]
     Active Substance: GEMCITABINE HYDROCHLORIDE
     Dosage: 1208 MG, 1X/DAY (ON DAY 1, 8 AND 15)
     Dates: start: 20231030, end: 20231030
  4. GEMCITABINE HYDROCHLORIDE [Suspect]
     Active Substance: GEMCITABINE HYDROCHLORIDE
     Dosage: 1208 MG, 1X/DAY (ON DAY 1, 8 AND 15)
     Dates: start: 20231108, end: 20231108
  5. PACLITAXEL [Suspect]
     Active Substance: PACLITAXEL
     Indication: Ductal adenocarcinoma of pancreas
     Dosage: 187.5 MG, 1X/DAY (ON DAY 1, 8 AND 15)
     Dates: start: 20230925, end: 20230925
  6. PACLITAXEL [Suspect]
     Active Substance: PACLITAXEL
     Dosage: 151 MG, 1X/DAY (ON DAY 1, 8 AND 15)
     Dates: start: 20231009, end: 20231009
  7. PACLITAXEL [Suspect]
     Active Substance: PACLITAXEL
     Dosage: 151 MG, 1X/DAY (ON DAY 1, 8 AND 15)
     Dates: start: 20231030, end: 20231030
  8. PACLITAXEL [Suspect]
     Active Substance: PACLITAXEL
     Dosage: 151 MG, 1X/DAY (ON DAY 1, 8 AND 15)
     Dates: start: 20231108, end: 20231108
  9. APIXABAN [Concomitant]
     Active Substance: APIXABAN
     Indication: Thrombosis prophylaxis
     Dosage: 5 MG, 1X/DAY
     Route: 048
  10. DEXAMETHASONE [Concomitant]
     Active Substance: DEXAMETHASONE
     Indication: Premedication
     Dosage: 4 MG, 1X/DAY
     Route: 048
     Dates: start: 20230926
  11. DEXAMETHASONE [Concomitant]
     Active Substance: DEXAMETHASONE
     Indication: Prophylaxis of nausea and vomiting
     Dosage: 8 MG, 1X/DAY
     Dates: start: 20231108, end: 20231108
  12. DEXAMETHASONE [Concomitant]
     Active Substance: DEXAMETHASONE
     Indication: Prophylactic chemotherapy
     Dosage: 8 MG, 1X/DAY
     Dates: start: 20231030, end: 20231030
  13. ESOMEPRAZOLE [Concomitant]
     Active Substance: ESOMEPRAZOLE
     Indication: Gastrointestinal disorder prophylaxis
     Dosage: 20 MG, 1X/DAY
     Route: 048
     Dates: start: 20230915
  14. EZETIMIBE\ROSUVASTATIN [Concomitant]
     Active Substance: EZETIMIBE\ROSUVASTATIN
     Indication: Dyslipidaemia
     Dosage: UNK UNK, 1X/DAY
     Route: 048
  15. FESOTERODINE FUMARATE [Concomitant]
     Active Substance: FESOTERODINE FUMARATE
     Indication: Nocturia
     Dosage: 4 MG, 1X/DAY
     Route: 048
     Dates: start: 20230915
  16. GRANULOCYTE COLONY-STIMULATING FACTOR NOS [Concomitant]
     Active Substance: GRANULOCYTE COLONY-STIMULATING FACTOR NOS
     Indication: Neutropenia
     Dosage: UNK
     Route: 058
     Dates: start: 20231116, end: 20231117
  17. LOPERAMIDE [Concomitant]
     Active Substance: LOPERAMIDE
     Indication: Diarrhoea
     Dosage: UNK (AS REQUIRED)
     Route: 048
     Dates: start: 202311
  18. METAMIZOLE [Concomitant]
     Active Substance: METAMIZOLE
     Indication: Abdominal pain upper
     Dosage: UNK (AS REQUIRED)
     Route: 048
     Dates: start: 20230915
  19. MIRABEGRON [Concomitant]
     Active Substance: MIRABEGRON
     Indication: Nocturia
     Dosage: 50 MG, 1X/DAY
     Route: 048
     Dates: start: 2022
  20. ONDANSETRON [Concomitant]
     Active Substance: ONDANSETRON
     Indication: Prophylaxis of nausea and vomiting
     Dosage: 4 MG, 1X/DAY
     Route: 048
     Dates: start: 20230926
  21. ONDANSETRON [Concomitant]
     Active Substance: ONDANSETRON
     Indication: Premedication
     Dosage: 8 MG, 1X/DAY
     Dates: start: 20231108, end: 20231108
  22. ONDANSETRON [Concomitant]
     Active Substance: ONDANSETRON
     Dosage: 8 MG, 1X/DAY
     Dates: start: 20231030, end: 20231030
  23. PANCREATIN [Concomitant]
     Active Substance: PANCRELIPASE
     Indication: Prophylaxis
     Dosage: UNK, 1X/DAY
     Route: 048
     Dates: start: 20230915
  24. ACETAMINOPHEN [Concomitant]
     Active Substance: ACETAMINOPHEN
     Indication: Abdominal pain upper
     Dosage: 650 MG (AS REQUIRED)
     Route: 048
     Dates: start: 20230915
  25. TINZAPARIN SODIUM [Concomitant]
     Active Substance: TINZAPARIN SODIUM
     Indication: Thrombosis prophylaxis
     Dosage: 8000 IU, 1X/DAY
     Route: 058
     Dates: start: 202309, end: 202310
  26. TINZAPARIN SODIUM [Concomitant]
     Active Substance: TINZAPARIN SODIUM
     Indication: Thrombosis prophylaxis
     Dosage: 8000 IU, 1X/DAY
     Route: 048
     Dates: start: 20231107
  27. URSODIOL [Concomitant]
     Active Substance: URSODIOL
     Dosage: UNK

REACTIONS (1)
  - Neutropenic colitis [Recovered/Resolved]

NARRATIVE: CASE EVENT DATE: 20231121
